FAERS Safety Report 17883876 (Version 1)
Quarter: 2020Q2

REPORT INFORMATION
  Report Type: Spontaneous
  Country: US (occurrence: US)
  Receive Date: 20200611
  Receipt Date: 20200611
  Transmission Date: 20200714
  Serious: No
  Sender: FDA-Public Use
  Company Number: US-IPSEN BIOPHARMACEUTICALS, INC.-2020-09775

PATIENT
  Age: 78 Year
  Sex: Male

DRUGS (3)
  1. XERMELO [Concomitant]
     Active Substance: TELOTRISTAT ETHYL
     Indication: CARCINOID SYNDROME
     Dates: start: 20170901
  2. SOMATULINE DEPOT [Suspect]
     Active Substance: LANREOTIDE ACETATE
     Indication: CARCINOID SYNDROME
     Dosage: DOSE NOT REPORTED
     Route: 065
  3. OCTREOTIDE. [Concomitant]
     Active Substance: OCTREOTIDE

REACTIONS (3)
  - Eye swelling [Not Recovered/Not Resolved]
  - Vision blurred [Unknown]
  - Off label use [Unknown]
